FAERS Safety Report 7347684-6 (Version None)
Quarter: 2011Q1

REPORT INFORMATION
  Report Type: 
  Country: None (occurrence: None)
  Receive Date: 20110311
  Receipt Date: 20110303
  Transmission Date: 20110831
  Serious: Yes (Other)
  Sender: FDA-Public Use
  Company Number: B0649648B

PATIENT
  Sex: Male
  Weight: 3.7 kg

DRUGS (2)
  1. AMOXICILLIN [Suspect]
     Route: 064
  2. PSEUDOEPHEDRINE HYDROCHLORIDE [Suspect]
     Dosage: 1CAP TWICE PER DAY
     Route: 064
     Dates: start: 20100405, end: 20100405

REACTIONS (1)
  - JAUNDICE NEONATAL [None]
